FAERS Safety Report 15272940 (Version 1)
Quarter: 2018Q3

REPORT INFORMATION
  Report Type: Spontaneous
  Country: US (occurrence: US)
  Receive Date: 20180813
  Receipt Date: 20180813
  Transmission Date: 20181010
  Serious: No
  Sender: FDA-Public Use
  Company Number: US-PURDUE-USA-2018-0143400

PATIENT
  Age: 37 Year
  Sex: Female

DRUGS (2)
  1. BUPRENORPHINE TRANSDERMAL PATCH [Suspect]
     Active Substance: BUPRENORPHINE
     Indication: NEURALGIA
     Dosage: 5 MCG/HR, WEEKLY
     Route: 062
     Dates: start: 20180323, end: 20180412
  2. IBUPROFEN. [Suspect]
     Active Substance: IBUPROFEN
     Indication: PAIN
     Dosage: 1600 MG, UNK
     Route: 048
     Dates: start: 20180323

REACTIONS (9)
  - Application site pain [Recovered/Resolved]
  - Application site burn [Unknown]
  - Application site erythema [Recovered/Resolved]
  - Wheezing [Recovered/Resolved]
  - Inadequate analgesia [Not Recovered/Not Resolved]
  - Loss of personal independence in daily activities [Not Recovered/Not Resolved]
  - Application site exfoliation [Recovered/Resolved]
  - Lethargy [Recovering/Resolving]
  - Dyspnoea [Recovered/Resolved]

NARRATIVE: CASE EVENT DATE: 20180323
